FAERS Safety Report 4491240-4 (Version None)
Quarter: 2004Q4

REPORT INFORMATION
  Report Type: 
  Country: None (occurrence: None)
  Receive Date: 20041101
  Receipt Date: 20041101
  Transmission Date: 20050328
  Serious: Yes (Death)
  Sender: FDA-Public Use
  Company Number: None

PATIENT
  Age: 42 Year
  Sex: Male
  Weight: 73.9 kg

DRUGS (7)
  1. RITUXAN [Suspect]
     Indication: B-CELL LYMPHOMA
     Dosage: 721 MG, IV, EVERY 21 DAYS
     Route: 042
     Dates: start: 20040128
  2. RITUXAN [Suspect]
     Indication: B-CELL LYMPHOMA
     Dosage: 721 MG, IV, EVERY 21 DAYS
     Route: 042
     Dates: start: 20040218
  3. RITUXAN [Suspect]
     Indication: B-CELL LYMPHOMA
     Dosage: 721 MG, IV, EVERY 21 DAYS
     Route: 042
     Dates: start: 20040310
  4. RITUXAN [Suspect]
     Indication: B-CELL LYMPHOMA
     Dosage: 721 MG, IV, EVERY 21 DAYS
     Route: 042
     Dates: start: 20040331
  5. ADRIAMYCIN PFS [Concomitant]
  6. CYTOXAN [Concomitant]
  7. VINCRISTINE [Concomitant]

REACTIONS (9)
  - ENCEPHALOPATHY [None]
  - HEPATIC FAILURE [None]
  - HEPATITIS ACUTE [None]
  - HEPATITIS B [None]
  - HYPERBILIRUBINAEMIA [None]
  - LABORATORY TEST ABNORMAL [None]
  - OESOPHAGEAL DISCOMFORT [None]
  - PYREXIA [None]
  - VOMITING [None]
